FAERS Safety Report 12234545 (Version 1)
Quarter: 2016Q2

REPORT INFORMATION
  Report Type: Spontaneous
  Country: US (occurrence: None)
  Receive Date: 20160401
  Receipt Date: 20160401
  Transmission Date: 20160815
  Serious: No
  Sender: FDA-Public Use
  Company Number: None

PATIENT
  Age: 75 Year
  Sex: Male

DRUGS (1)
  1. CLONIDINE, 0.3MG UNICHEM LABORATORIES [Suspect]
     Active Substance: CLONIDINE
     Indication: HYPERTENSION
     Route: 048
     Dates: start: 20150801, end: 20160325

REACTIONS (3)
  - Constipation [None]
  - Somnolence [None]
  - Drug effect decreased [None]

NARRATIVE: CASE EVENT DATE: 20160330
